FAERS Safety Report 10614854 (Version 1)
Quarter: 2014Q4

REPORT INFORMATION
  Report Type: Spontaneous
  Country: RU (occurrence: RU)
  Receive Date: 20141201
  Receipt Date: 20141201
  Transmission Date: 20150529
  Serious: Yes (Death)
  Sender: FDA-Public Use
  Company Number: RU-ROCHE-1497242

PATIENT
  Age: 44 Year
  Sex: Male

DRUGS (1)
  1. ACTILYSE [Suspect]
     Active Substance: ALTEPLASE
     Indication: ACUTE MYOCARDIAL INFARCTION
     Route: 042
     Dates: start: 20141114, end: 20141114

REACTIONS (2)
  - Cerebral haematoma [Fatal]
  - Brain midline shift [Fatal]

NARRATIVE: CASE EVENT DATE: 20141114
